FAERS Safety Report 7580881-3 (Version None)
Quarter: 2011Q2

REPORT INFORMATION
  Report Type: 
  Country: None (occurrence: None)
  Receive Date: 20110629
  Receipt Date: 20110615
  Transmission Date: 20111010
  Serious: Yes (Hospitalization)
  Sender: FDA-Public Use
  Company Number: US-WATSON-2011-08646

PATIENT
  Sex: Female
  Weight: 77.098 kg

DRUGS (1)
  1. FENTANYL-75 [Suspect]
     Indication: PAIN
     Dosage: 2 PATCHES Q 3 DAYS
     Route: 062
     Dates: start: 20110507, end: 20110603

REACTIONS (2)
  - DYSPNOEA [None]
  - CHEST PAIN [None]
